APPROVED DRUG PRODUCT: CEFACLOR
Active Ingredient: CEFACLOR
Strength: EQ 500MG BASE
Dosage Form/Route: TABLET, EXTENDED RELEASE;ORAL
Application: A065057 | Product #001
Applicant: WORLD GEN LLC
Approved: Jan 5, 2001 | RLD: No | RS: No | Type: DISCN